FAERS Safety Report 22175113 (Version 3)
Quarter: 2023Q2

REPORT INFORMATION
  Report Type: Report from Study
  Country: CA (occurrence: CA)
  Receive Date: 20230405
  Receipt Date: 20230517
  Transmission Date: 20230721
  Serious: Yes (Death, Hospitalization)
  Sender: FDA-Public Use
  Company Number: CA-002147023-NVSC2023CA076765

PATIENT
  Age: 69 Year
  Sex: Female
  Weight: 68.03 kg

DRUGS (2)
  1. TRAMETINIB [Suspect]
     Active Substance: TRAMETINIB
     Indication: Ovarian cancer
     Dosage: 1.5 MG
     Route: 048
     Dates: start: 20220304
  2. TRAMETINIB [Suspect]
     Active Substance: TRAMETINIB
     Dosage: 1.5 MG
     Route: 048
     Dates: start: 20230303, end: 20230325

REACTIONS (3)
  - Death [Fatal]
  - Intestinal obstruction [Recovered/Resolved]
  - Rash [Recovered/Resolved]

NARRATIVE: CASE EVENT DATE: 20230328
